FAERS Safety Report 4284523-4 (Version None)
Quarter: 2004Q1

REPORT INFORMATION
  Report Type: 
  Country: None (occurrence: None)
  Receive Date: 20040130
  Receipt Date: 20040109
  Transmission Date: 20041129
  Serious: Yes (Hospitalization)
  Sender: FDA-Public Use
  Company Number: DSA_23908_2004

PATIENT
  Age: 64 Year
  Sex: Male

DRUGS (8)
  1. HERBESSER R [Suspect]
     Dosage: 100 MG Q DAY PO
     Route: 048
     Dates: end: 20031217
  2. PROHEPARUM [Suspect]
  3. DOGMATYL [Suspect]
  4. ZYLORIC [Suspect]
  5. ALESION [Suspect]
  6. LASIX [Concomitant]
  7. TATHION [Concomitant]
  8. DIGITALIS [Concomitant]

REACTIONS (5)
  - ATRIOVENTRICULAR BLOCK [None]
  - HAEMATURIA [None]
  - OLIGURIA [None]
  - RENAL IMPAIRMENT [None]
  - THERAPEUTIC AGENT TOXICITY [None]
